FAERS Safety Report 8890744 (Version 3)
Quarter: 2014Q1

REPORT INFORMATION
  Report Type: Report from Study
  Country: JP (occurrence: JP)
  Receive Date: 20121107
  Receipt Date: 20140206
  Transmission Date: 20141002
  Serious: Yes (Other)
  Sender: FDA-Public Use
  Company Number: JP-VERTEX PHARMACEUTICAL INC.-2012-024175

PATIENT
  Age: 64 Year
  Sex: Male

DRUGS (6)
  1. VX-950 (TELAPREVIR) [Suspect]
     Indication: CHRONIC HEPATITIS C
     Dosage: 2250 MG, QD
     Route: 048
     Dates: start: 20120818, end: 20120830
  2. RIBAVIRIN [Suspect]
     Indication: CHRONIC HEPATITIS C
     Dosage: 800 MG, QD
     Route: 048
     Dates: start: 20120818
  3. PEGINTERFERON ALFA-2B [Concomitant]
     Dosage: 1.5 ?G/KG, QW
     Route: 058
     Dates: start: 20120818
  4. NAUZELIN OD [Concomitant]
     Dosage: 10 MG, UNK
     Route: 048
     Dates: start: 20120808, end: 20130108
  5. L-CARTIN [Concomitant]
     Dosage: 900 MG, QD
     Route: 048
     Dates: start: 20120919
  6. TSUMURA RIKKUNSHITO EXTRACT GRANULES [Concomitant]
     Dosage: 7.5 G, QD
     Route: 048
     Dates: start: 20120830, end: 20120926

REACTIONS (2)
  - Rash [Recovered/Resolved]
  - Anaemia [Recovered/Resolved]
